FAERS Safety Report 18558827 (Version 4)
Quarter: 2021Q2

REPORT INFORMATION
  Report Type: Report from Study
  Country: GB (occurrence: GB)
  Receive Date: 20201130
  Receipt Date: 20210615
  Transmission Date: 20210717
  Serious: Yes (Other)
  Sender: FDA-Public Use
  Company Number: GB-TAKEDA-2020TUS053075

PATIENT
  Age: 27 Year
  Sex: Male

DRUGS (1)
  1. VEDOLIZUMAB [Suspect]
     Active Substance: VEDOLIZUMAB
     Indication: COLITIS ULCERATIVE
     Dosage: 108 MILLIGRAM, Q2WEEKS
     Route: 058
     Dates: start: 20200813

REACTIONS (5)
  - Injection site pain [Unknown]
  - Colitis ulcerative [Unknown]
  - Influenza like illness [Unknown]
  - Therapeutic product effect decreased [Unknown]
  - Migraine [Unknown]
